FAERS Safety Report 9929495 (Version 1)
Quarter: 2014Q1

REPORT INFORMATION
  Report Type: Spontaneous
  Country: PL (occurrence: PL)
  Receive Date: 20140227
  Receipt Date: 20140227
  Transmission Date: 20141002
  Serious: Yes (Other)
  Sender: FDA-Public Use
  Company Number: PHHY2014PL023258

PATIENT
  Sex: Male

DRUGS (5)
  1. METOPROLOL [Suspect]
     Route: 064
  2. METHYLDOPA [Suspect]
     Route: 064
  3. PREDNISONE [Suspect]
     Route: 064
  4. ENOXAPARIN [Suspect]
     Route: 064
  5. THYROXINE [Suspect]
     Route: 064

REACTIONS (2)
  - Foetal hypokinesia [Unknown]
  - Foetal exposure during pregnancy [Unknown]
